FAERS Safety Report 16395520 (Version 1)
Quarter: 2019Q2

REPORT INFORMATION
  Report Type: Spontaneous
  Country: FR (occurrence: FR)
  Receive Date: 20190605
  Receipt Date: 20190605
  Transmission Date: 20190711
  Serious: Yes (Other)
  Sender: FDA-Public Use
  Company Number: FR-MYLANLABS-2019M1051452

PATIENT
  Age: 88 Year
  Sex: Female
  Weight: 54 kg

DRUGS (1)
  1. RISPERIDONE. [Suspect]
     Active Substance: RISPERIDONE
     Indication: BEHAVIOUR DISORDER
     Dosage: 0.5 MILLIGRAM, QD
     Route: 048
     Dates: start: 201806, end: 201809

REACTIONS (2)
  - Akathisia [Not Recovered/Not Resolved]
  - Extrapyramidal disorder [Not Recovered/Not Resolved]

NARRATIVE: CASE EVENT DATE: 201809
